FAERS Safety Report 6946232-X (Version None)
Quarter: 2010Q3

REPORT INFORMATION
  Report Type: 
  Country: None (occurrence: None)
  Receive Date: 20100824
  Receipt Date: 20100809
  Transmission Date: 20110219
  Serious: Yes (Hospitalization)
  Sender: FDA-Public Use
  Company Number: 016762

PATIENT
  Sex: Male
  Weight: 66 kg

DRUGS (6)
  1. CERTOLIZUMAB PEGOL (CDP870) [Suspect]
     Indication: RHEUMATOID ARTHRITIS
     Dosage: (400 MG 1X/4 WEEKS SUBCUTANEOUS)
     Route: 058
     Dates: start: 20090819
  2. PREDNISOLONE [Concomitant]
  3. SULFASALAZINE [Concomitant]
  4. ROXATIDINE ACETATE HCL [Concomitant]
  5. LOXOPROFEN SODIUM [Concomitant]
  6. KETOPROFEN [Concomitant]

REACTIONS (4)
  - ARTHRALGIA [None]
  - BONE DISORDER [None]
  - HERPES ZOSTER [None]
  - HIP ARTHROPLASTY [None]
